FAERS Safety Report 8056119-X (Version None)
Quarter: 2011Q4

REPORT INFORMATION
  Report Type: 
  Country: None (occurrence: None)
  Receive Date: 20111219
  Receipt Date: 20110527
  Transmission Date: 20120403
  Serious: Yes (Hospitalization)
  Sender: FDA-Public Use
  Company Number: WAES 1105USA04067

PATIENT
  Sex: Male

DRUGS (3)
  1. VICTOZA [Concomitant]
  2. JANUVIA [Suspect]
     Indication: PRODUCT USED FOR UNKNOWN INDICATION
     Dosage: UNK/UNK/PO
     Route: 048
  3. INSULIN [Concomitant]

REACTIONS (1)
  - PANCREATITIS [None]
